FAERS Safety Report 21915988 (Version 1)
Quarter: 2023Q1

REPORT INFORMATION
  Report Type: Spontaneous
  Country: US (occurrence: None)
  Receive Date: 20230125
  Receipt Date: 20230125
  Transmission Date: 20230417
  Serious: Yes (Life-Threatening, Hospitalization)
  Sender: FDA-Public Use
  Company Number: None

PATIENT
  Age: 53 Year
  Sex: Female
  Weight: 57.15 kg

DRUGS (9)
  1. TALTZ [Suspect]
     Active Substance: IXEKIZUMAB
     Indication: Psoriatic arthropathy
     Dosage: OTHER FREQUENCY : EVERY 4 WEEKS;?
     Route: 058
  2. Hydroxyzine 25mg TID [Concomitant]
  3. Methadone 40mg 2 daily [Concomitant]
  4. Gabapentin 600mg 2 BID [Concomitant]
  5. Dexilant 60mg daily [Concomitant]
  6. Bupropion XL 300mg daily [Concomitant]
  7. Vitamin D2 50,000 IU monthly [Concomitant]
  8. Breztri 2 puffs BID [Concomitant]
  9. Montelukast 10mg daily [Concomitant]

REACTIONS (3)
  - Therapy interrupted [None]
  - Acute respiratory failure [None]
  - Posterior reversible encephalopathy syndrome [None]

NARRATIVE: CASE EVENT DATE: 20230105
